FAERS Safety Report 21263700 (Version 1)
Quarter: 2022Q3

REPORT INFORMATION
  Report Type: Spontaneous
  Country: US (occurrence: US)
  Receive Date: 20220829
  Receipt Date: 20220829
  Transmission Date: 20221027
  Serious: Yes (Hospitalization)
  Sender: FDA-Public Use
  Company Number: US-JNJFOC-20220852934

PATIENT
  Sex: Female

DRUGS (3)
  1. XARELTO [Suspect]
     Active Substance: RIVAROXABAN
     Indication: Product used for unknown indication
     Route: 048
  2. JAKAFI [Suspect]
     Active Substance: RUXOLITINIB
     Indication: Myelofibrosis
     Route: 065
     Dates: start: 202205
  3. ASPIRIN [Suspect]
     Active Substance: ASPIRIN
     Indication: Product used for unknown indication
     Route: 065

REACTIONS (4)
  - Gastrointestinal haemorrhage [Recovering/Resolving]
  - Platelet count increased [Unknown]
  - Muscle spasms [Unknown]
  - Haemoglobin decreased [Unknown]
